FAERS Safety Report 13584556 (Version 1)
Quarter: 2017Q2

REPORT INFORMATION
  Report Type: Spontaneous
  Country: US (occurrence: US)
  Receive Date: 20170526
  Receipt Date: 20170526
  Transmission Date: 20170830
  Serious: Yes (Hospitalization, Other)
  Sender: FDA-Public Use
  Company Number: US-TEVA-772068USA

PATIENT
  Age: 71 Year
  Sex: Female
  Weight: 82.63 kg

DRUGS (2)
  1. DISOPYRAMIDE [Suspect]
     Active Substance: DISOPYRAMIDE
     Indication: HYPOTENSION
     Dosage: 300 MILLIGRAM DAILY;
     Route: 048
  2. NORPACE CR [Suspect]
     Active Substance: DISOPYRAMIDE PHOSPHATE
     Indication: HYPOTENSION
     Dosage: 300 MILLIGRAM DAILY;
     Route: 048

REACTIONS (4)
  - Emotional disorder [Not Recovered/Not Resolved]
  - Knee arthroplasty [Recovering/Resolving]
  - Atrial fibrillation [Unknown]
  - Stress [Not Recovered/Not Resolved]

NARRATIVE: CASE EVENT DATE: 20170421
